FAERS Safety Report 21513483 (Version 1)
Quarter: 2022Q4

REPORT INFORMATION
  Report Type: Report from Study
  Country: JP (occurrence: JP)
  Receive Date: 20221027
  Receipt Date: 20221027
  Transmission Date: 20230112
  Serious: Yes (Other)
  Sender: FDA-Public Use
  Company Number: JP-NOVARTISPH-NVSJ2022JP099629

PATIENT
  Age: 56 Year
  Sex: Female

DRUGS (2)
  1. NEORAL [Suspect]
     Active Substance: CYCLOSPORINE
     Indication: Systemic lupus erythematosus
     Dosage: UNK
     Route: 048
     Dates: start: 2011
  2. NEORAL [Suspect]
     Active Substance: CYCLOSPORINE
     Indication: Sjogren^s syndrome

REACTIONS (7)
  - Sjogren^s syndrome [Unknown]
  - Systemic lupus erythematosus [Unknown]
  - Disease progression [Unknown]
  - Condition aggravated [Unknown]
  - Psoriasis [Unknown]
  - Arthritis [Unknown]
  - Alopecia [Unknown]

NARRATIVE: CASE EVENT DATE: 20150101
